FAERS Safety Report 6425169-9 (Version None)
Quarter: 2009Q4

REPORT INFORMATION
  Report Type: 
  Country: None (occurrence: None)
  Receive Date: 20091102
  Receipt Date: 20091102
  Transmission Date: 20100525
  Serious: No
  Sender: FDA-Public Use
  Company Number: None

PATIENT
  Age: 27 Year
  Sex: Male
  Weight: 107 kg

DRUGS (2)
  1. ARIPIPRAZOLE [Suspect]
     Indication: BIPOLAR DISORDER
     Dosage: 5 MG EVERYDAY, PO
     Route: 048
     Dates: start: 20080811, end: 20081126
  2. ARIPIPRAZOLE [Suspect]
     Indication: MANIA
     Dosage: 5 MG EVERYDAY, PO
     Route: 048
     Dates: start: 20080811, end: 20081126

REACTIONS (1)
  - HYPERGLYCAEMIA [None]
